FAERS Safety Report 4492412-5 (Version None)
Quarter: 2004Q4

REPORT INFORMATION
  Report Type: 
  Country: None (occurrence: None)
  Receive Date: 20041102
  Receipt Date: 20041102
  Transmission Date: 20050328
  Serious: Yes (Life-Threatening)
  Sender: FDA-Public Use
  Company Number: None

PATIENT
  Age: 67 Year
  Sex: Female

DRUGS (7)
  1. PENTAMIDINE [Suspect]
     Dosage: 300 MG ONCE RESPIRATOR
     Route: 055
     Dates: start: 20040512, end: 20040512
  2. NEORAL [Concomitant]
  3. MYCOPHENOLATE MOFETIL-CELLCEPT [Concomitant]
  4. PREDNISONE [Concomitant]
  5. ACYCLOVIR [Concomitant]
  6. COREG [Concomitant]
  7. DOXASOZIN-CARDURA [Concomitant]

REACTIONS (1)
  - RESPIRATORY DISTRESS [None]
